APPROVED DRUG PRODUCT: GEMFIBROZIL
Active Ingredient: GEMFIBROZIL
Strength: 600MG
Dosage Form/Route: TABLET;ORAL
Application: A077836 | Product #001 | TE Code: AB
Applicant: INVAGEN PHARMACEUTICALS INC
Approved: Jul 27, 2006 | RLD: No | RS: No | Type: RX